FAERS Safety Report 6103624-9 (Version None)
Quarter: 2009Q1

REPORT INFORMATION
  Report Type: 
  Country: None (occurrence: None)
  Receive Date: 20090227
  Receipt Date: 20080304
  Transmission Date: 20090719
  Serious: Yes (Other)
  Sender: FDA-Public Use
  Company Number: 551191

PATIENT

DRUGS (1)
  1. ACCUTANE [Suspect]
     Indication: ACNE

REACTIONS (2)
  - ACNE [None]
  - PREGNANCY [None]
